FAERS Safety Report 11749019 (Version 5)
Quarter: 2016Q1

REPORT INFORMATION
  Report Type: Spontaneous
  Country: JP (occurrence: JP)
  Receive Date: 20151118
  Receipt Date: 20160329
  Transmission Date: 20160525
  Serious: Yes (Other)
  Sender: FDA-Public Use
  Company Number: JP-009507513-1511JPN009408

PATIENT
  Age: 76 Year
  Sex: Female

DRUGS (4)
  1. ASCORBIC ACID (+) CYSTEINE (+) NIACINAMIDE (+) RIBOFLAVIN [Concomitant]
     Dosage: UNK
     Dates: start: 20151008, end: 20151110
  2. MONTELUKAST [Suspect]
     Active Substance: MONTELUKAST SODIUM
     Indication: ASTHMA
     Dosage: 10 MG, QD
     Route: 048
     Dates: start: 20151013, end: 20151110
  3. RECALBON [Concomitant]
     Active Substance: MINODRONIC ACID
     Dosage: 50 MG, QD
     Route: 048
  4. CRESTOR [Concomitant]
     Active Substance: ROSUVASTATIN CALCIUM
     Dosage: 2.5 MG, QD
     Route: 048

REACTIONS (1)
  - Lung adenocarcinoma [Not Recovered/Not Resolved]

NARRATIVE: CASE EVENT DATE: 20151022
